FAERS Safety Report 6243436-9 (Version None)
Quarter: 2009Q2

REPORT INFORMATION
  Report Type: 
  Country: None (occurrence: None)
  Receive Date: 20090624
  Receipt Date: 20090615
  Transmission Date: 20091009
  Serious: Yes (Hospitalization)
  Sender: FDA-Public Use
  Company Number: US-JNJFOC-20090606366

PATIENT
  Sex: Male
  Weight: 44.4 kg

DRUGS (7)
  1. INFLIXIMAB [Suspect]
     Indication: CROHN'S DISEASE
     Route: 042
  2. ASACOL [Concomitant]
  3. THALOMID [Concomitant]
  4. CELLCEPT [Concomitant]
     Route: 048
  5. HUMIRA [Concomitant]
  6. FOSAMAX [Concomitant]
  7. PREDNISONE [Concomitant]

REACTIONS (1)
  - WEIGHT DECREASED [None]
